FAERS Safety Report 8791399 (Version 2)
Quarter: 2012Q4

REPORT INFORMATION
  Report Type: Spontaneous
  Country: US (occurrence: None)
  Receive Date: 20120911
  Receipt Date: 20120918
  Transmission Date: 20130627
  Serious: Yes (Hospitalization)
  Sender: FDA-Public Use
  Company Number: JPI-P-024962

PATIENT
  Age: 15 Year
  Sex: Male
  Weight: 102.06 kg

DRUGS (8)
  1. XYREM (500 MILLIGRAM/MILLILITERS, SOLUTION)(SODIUM OXYBATE) [Suspect]
     Indication: CATAPLEXY
     Dosage: 4.5 gm (2.25 gm,2 in 1 D),Oral
     Route: 048
     Dates: start: 20120710, end: 2012
  2. XYREM (500 MILLIGRAM/MILLILITERS, SOLUTION)(SODIUM OXYBATE) [Suspect]
     Indication: CATAPLEXY
     Dosage: 6 gm (3 gm,2 in 1 D),Oral
     Route: 048
     Dates: start: 2012, end: 20120807
  3. XYREM (500 MILLIGRAM/MILLILITERS, SOLUTION)(SODIUM OXYBATE) [Suspect]
     Indication: CATAPLEXY
     Dosage: 6.5 gm (3.25 gm,2 in 1 D),Oral
     Route: 048
     Dates: start: 20120808
  4. XYREM (500 MILLIGRAM/MILLILITERS, SOLUTION)(SODIUM OXYBATE) [Suspect]
     Indication: CATAPLEXY
     Dosage: 7.5 gm (3.75 gm,2 in 1 D),Oral
     Route: 048
     Dates: start: 20120816, end: 20120821
  5. XYREM (500 MILLIGRAM/MILLILITERS, SOLUTION)(SODIUM OXYBATE) [Suspect]
     Indication: CATAPLEXY
  6. IMIPRAMINE [Concomitant]
     Indication: CATAPLEXY
  7. IMIPRAMINE [Concomitant]
     Indication: CATAPLEXY
  8. MODAFINIL [Concomitant]

REACTIONS (31)
  - Toxicity to various agents [None]
  - Atrial fibrillation [None]
  - Renal impairment [None]
  - Intraocular pressure increased [None]
  - Tachycardia [None]
  - Hypertension [None]
  - Delusion [None]
  - Hallucination, visual [None]
  - Hallucination, auditory [None]
  - Hallucination, tactile [None]
  - Hepatic function abnormal [None]
  - Electrocardiogram QT prolonged [None]
  - Abdominal distension [None]
  - Drug abuse [None]
  - Cognitive disorder [None]
  - Choking sensation [None]
  - Screaming [None]
  - Tic [None]
  - Cataplexy [None]
  - Sleep paralysis [None]
  - Abnormal dreams [None]
  - Feeling abnormal [None]
  - Retching [None]
  - Feeling hot [None]
  - Decreased appetite [None]
  - Muscle twitching [None]
  - Oropharyngeal pain [None]
  - Dysphagia [None]
  - Insomnia [None]
  - Dysgeusia [None]
  - Gastrooesophageal reflux disease [None]
